FAERS Safety Report 21839123 (Version 2)
Quarter: 2023Q1

REPORT INFORMATION
  Report Type: Spontaneous
  Country: IT (occurrence: IT)
  Receive Date: 20230109
  Receipt Date: 20230223
  Transmission Date: 20230418
  Serious: Yes (Hospitalization)
  Sender: FDA-Public Use
  Company Number: IT-INNOCOLL PHARMACEUTICALS LIMITED-2022INN00116

PATIENT
  Age: 34 Year
  Sex: Female
  Weight: 65 kg

DRUGS (4)
  1. BUPIVACAINE [Suspect]
     Active Substance: BUPIVACAINE
     Indication: Caesarean section
     Dosage: 12 MG
     Route: 065
  2. BUPIVACAINE [Suspect]
     Active Substance: BUPIVACAINE
     Indication: Caesarean section
     Dosage: 12 MG
     Route: 065
  3. BETADINE [Concomitant]
     Active Substance: POVIDONE-IODINE
     Indication: Caesarean section
     Route: 065
  4. MEPIVACAINE [Concomitant]
     Active Substance: MEPIVACAINE HYDROCHLORIDE
     Indication: Caesarean section
     Route: 065

REACTIONS (4)
  - Urinary retention [Recovered/Resolved]
  - Dysaesthesia [Not Recovered/Not Resolved]
  - Cauda equina syndrome [Recovered/Resolved]
  - Arachnoiditis [Recovered/Resolved]
